FAERS Safety Report 5059069-6 (Version None)
Quarter: 2006Q3

REPORT INFORMATION
  Report Type: 
  Country: None (occurrence: None)
  Receive Date: 20060718
  Receipt Date: 20060710
  Transmission Date: 20061208
  Serious: Yes (Hospitalization, Other)
  Sender: FDA-Public Use
  Company Number: T200600717

PATIENT
  Age: 74 Year
  Sex: Female

DRUGS (7)
  1. MD-GASTROVIEW [Suspect]
     Indication: COMPUTERISED TOMOGRAM ABDOMEN
     Dosage: 60 ML, SINGLE, ORAL
     Route: 048
     Dates: start: 20060622, end: 20060622
  2. TOPROL-XL [Concomitant]
  3. LISINOPRIL [Concomitant]
  4. CLONAZEPAM [Concomitant]
  5. SYNTHROID [Concomitant]
  6. VERAPAMIL [Concomitant]
  7. VICODIN [Concomitant]

REACTIONS (2)
  - ANAPHYLACTIC REACTION [None]
  - HEART RATE INCREASED [None]
